FAERS Safety Report 13595900 (Version 2)
Quarter: 2017Q3

REPORT INFORMATION
  Report Type: Spontaneous
  Country: US (occurrence: US)
  Receive Date: 20170531
  Receipt Date: 20170725
  Transmission Date: 20171127
  Serious: No
  Sender: FDA-Public Use
  Company Number: US-JNJFOC-20170508643

PATIENT
  Age: 74 Year
  Sex: Female

DRUGS (1)
  1. TYLENOL EXTRA STRENGTH [Suspect]
     Active Substance: ACETAMINOPHEN
     Indication: ARTHRALGIA
     Dosage: TWICE A DAY-OR AS NEEDED/ SOMETIMES LESS
     Route: 048

REACTIONS (5)
  - Headache [Recovering/Resolving]
  - Dizziness [Recovering/Resolving]
  - Reaction to excipient [Recovering/Resolving]
  - Ear pain [Recovering/Resolving]
  - Disorientation [Recovering/Resolving]
